FAERS Safety Report 9788887 (Version 5)
Quarter: 2014Q2

REPORT INFORMATION
  Report Type: Report from Study
  Country: NL (occurrence: NL)
  Receive Date: 20131230
  Receipt Date: 20140428
  Transmission Date: 20141212
  Serious: Yes (Hospitalization)
  Sender: FDA-Public Use
  Company Number: NL-ABBVIE-13P-114-1177081-00

PATIENT
  Age: 25 Year
  Sex: Female
  Weight: 78 kg

DRUGS (14)
  1. HUMIRA [Suspect]
     Indication: CROHN^S DISEASE
     Route: 058
     Dates: start: 20130902, end: 20131202
  2. PREDNISONE [Suspect]
     Indication: CROHN^S DISEASE
     Route: 048
     Dates: start: 20130902, end: 20130902
  3. PREDNISONE [Suspect]
     Route: 048
     Dates: start: 20130903, end: 20130915
  4. PREDNISONE [Suspect]
     Route: 048
     Dates: start: 20130916, end: 20130922
  5. PREDNISONE [Suspect]
     Route: 048
     Dates: start: 20130923, end: 20130929
  6. PREDNISONE [Suspect]
     Route: 048
     Dates: start: 20130930, end: 20131006
  7. PREDNISONE [Suspect]
     Route: 048
     Dates: start: 20131007, end: 20131013
  8. PREDNISONE [Suspect]
     Route: 048
     Dates: start: 20131014, end: 20131020
  9. PREDNISONE [Suspect]
     Route: 048
     Dates: start: 20131021, end: 20131027
  10. MICROGYNON [Concomitant]
     Indication: CONTRACEPTION
     Route: 048
     Dates: start: 200601
  11. PARACETAMOL [Concomitant]
     Indication: HEADACHE
     Route: 048
     Dates: start: 20130821
  12. PANTOPRAZOL [Concomitant]
     Indication: HYPERCHLORHYDRIA
     Route: 048
     Dates: start: 20131119, end: 20131205
  13. PANTOPRAZOL [Concomitant]
     Route: 048
     Dates: start: 20131206
  14. BROOMHEXINE HCL [Concomitant]
     Indication: COUGH
     Route: 048
     Dates: start: 20131119, end: 20131205

REACTIONS (1)
  - Crohn^s disease [Recovered/Resolved]
